FAERS Safety Report 21053663 (Version 1)
Quarter: 2022Q3

REPORT INFORMATION
  Report Type: Spontaneous
  Country: FR (occurrence: FR)
  Receive Date: 20220707
  Receipt Date: 20220707
  Transmission Date: 20221026
  Serious: Yes (Congenital Anomaly)
  Sender: FDA-Public Use
  Company Number: None

PATIENT

DRUGS (4)
  1. OMEPRAZOLE [Suspect]
     Active Substance: OMEPRAZOLE
     Indication: Foetal exposure during pregnancy
     Dosage: UNK
     Route: 064
     Dates: end: 20210630
  2. METFORMIN [Suspect]
     Active Substance: METFORMIN HYDROCHLORIDE
     Indication: Foetal exposure during pregnancy
     Dosage: UNK
     Route: 064
     Dates: end: 20210630
  3. GLICLAZIDE [Suspect]
     Active Substance: GLICLAZIDE
     Indication: Foetal exposure during pregnancy
     Dosage: UNK
     Route: 064
     Dates: end: 20210630
  4. JANUMET [Suspect]
     Active Substance: METFORMIN HYDROCHLORIDE\SITAGLIPTIN PHOSPHATE
     Indication: Foetal exposure during pregnancy
     Dosage: UNK
     Route: 064
     Dates: end: 20210630

REACTIONS (2)
  - Renal aplasia [Recovered/Resolved with Sequelae]
  - Congenital great vessel anomaly [Recovered/Resolved with Sequelae]

NARRATIVE: CASE EVENT DATE: 20210101
